FAERS Safety Report 7576877-8 (Version None)
Quarter: 2011Q2

REPORT INFORMATION
  Report Type: 
  Country: None (occurrence: None)
  Receive Date: 20110628
  Receipt Date: 20110621
  Transmission Date: 20111010
  Serious: Yes (Death)
  Sender: FDA-Public Use
  Company Number: US-JNJFOC-20110504915

PATIENT
  Sex: Female

DRUGS (2)
  1. STELARA [Suspect]
     Indication: PSORIASIS
     Route: 058
     Dates: start: 20110331
  2. STELARA [Suspect]
     Route: 058
     Dates: start: 20100910

REACTIONS (4)
  - DEATH [None]
  - VOMITING [None]
  - DIARRHOEA [None]
  - NAUSEA [None]
